FAERS Safety Report 21157524 (Version 2)
Quarter: 2022Q3

REPORT INFORMATION
  Report Type: Spontaneous
  Country: JP (occurrence: JP)
  Receive Date: 20220801
  Receipt Date: 20220812
  Transmission Date: 20221027
  Serious: Yes (Other)
  Sender: FDA-Public Use
  Company Number: JP-GILEAD-2022-0591220

PATIENT
  Age: 32 Year
  Sex: Male

DRUGS (3)
  1. VEKLURY [Interacting]
     Active Substance: REMDESIVIR
     Indication: COVID-19 pneumonia
     Dosage: UNK
     Route: 065
  2. PHENYTOIN SODIUM [Interacting]
     Active Substance: PHENYTOIN SODIUM
     Indication: Product used for unknown indication
     Dosage: UNK
     Route: 048
  3. PHENYTOIN SODIUM [Interacting]
     Active Substance: PHENYTOIN SODIUM
     Dosage: UNK
     Route: 041

REACTIONS (5)
  - Generalised tonic-clonic seizure [Recovering/Resolving]
  - Status epilepticus [Recovering/Resolving]
  - Drug level decreased [Recovered/Resolved]
  - Neutrophil count decreased [Unknown]
  - Drug interaction [Unknown]
